FAERS Safety Report 9745600 (Version 1)
Quarter: 2013Q4

REPORT INFORMATION
  Report Type: Spontaneous
  Country: US (occurrence: US)
  Receive Date: 20131211
  Receipt Date: 20131211
  Transmission Date: 20140711
  Serious: Yes (Other)
  Sender: FDA-Public Use
  Company Number: US-PFIZER INC-2013346179

PATIENT
  Age: 78 Year
  Sex: Female

DRUGS (2)
  1. PREMARIN [Suspect]
     Indication: HORMONE REPLACEMENT THERAPY
     Dosage: UNK
  2. PROVERA [Suspect]
     Indication: HORMONE REPLACEMENT THERAPY
     Dosage: UNK

REACTIONS (15)
  - Invasive lobular breast carcinoma [Recovered/Resolved]
  - Multiple sclerosis [Unknown]
  - Hypoaesthesia [Unknown]
  - Paraesthesia [Unknown]
  - Faecal incontinence [Unknown]
  - Urinary incontinence [Unknown]
  - Amnesia [Unknown]
  - Cognitive disorder [Unknown]
  - Diarrhoea [Unknown]
  - Mitral valve prolapse [Unknown]
  - Blood pressure increased [Unknown]
  - Chest discomfort [Unknown]
  - Headache [Unknown]
  - Pain [Unknown]
  - Nausea [Unknown]
